FAERS Safety Report 5946662-9 (Version None)
Quarter: 2008Q4

REPORT INFORMATION
  Report Type: 
  Country: None (occurrence: None)
  Receive Date: 20081110
  Receipt Date: 20080918
  Transmission Date: 20090506
  Serious: No
  Sender: FDA-Public Use
  Company Number: A0738876A

PATIENT
  Age: 4 Year
  Sex: Female

DRUGS (2)
  1. ALTABAX [Suspect]
     Indication: DRUG USE FOR UNKNOWN INDICATION
     Route: 061
     Dates: start: 20080714, end: 20080714
  2. NO CONCURRENT MEDICATION [Concomitant]

REACTIONS (4)
  - APPLICATION SITE IRRITATION [None]
  - APPLICATION SITE PAIN [None]
  - CRYING [None]
  - DISCOMFORT [None]
